FAERS Safety Report 25318252 (Version 1)
Quarter: 2025Q2

REPORT INFORMATION
  Report Type: Spontaneous
  Country: US (occurrence: US)
  Receive Date: 20250515
  Receipt Date: 20250515
  Transmission Date: 20250716
  Serious: Yes (Death, Hospitalization, Other)
  Sender: SUNOVION
  Company Number: US-SMPA-2025SPA005950

PATIENT

DRUGS (8)
  1. RELUGOLIX [Suspect]
     Active Substance: RELUGOLIX
     Indication: Prostate cancer
     Dosage: 120 MG, QD
     Route: 048
     Dates: start: 20241030
  2. TALAZOPARIB [Suspect]
     Active Substance: TALAZOPARIB
     Indication: Prostate cancer
     Dosage: 1 MG, QD
     Route: 065
     Dates: start: 20240102
  3. PREDNISONE [Suspect]
     Active Substance: PREDNISONE
     Indication: Prostate cancer
     Dosage: 5 MG, QD
     Route: 065
     Dates: start: 20241218
  4. ABIRATERONE [Suspect]
     Active Substance: ABIRATERONE
     Indication: Prostate cancer
     Dosage: 1000 MG, QD
     Route: 065
     Dates: start: 20241218
  5. FLOMAX [Concomitant]
     Active Substance: TAMSULOSIN HYDROCHLORIDE
     Indication: Pollakiuria
     Route: 048
     Dates: start: 20240621
  6. LIPITOR [Concomitant]
     Active Substance: ATORVASTATIN CALCIUM
     Indication: Cerebrovascular accident
     Route: 048
     Dates: start: 20240621
  7. ELIQUIS [Concomitant]
     Active Substance: APIXABAN
     Indication: Embolism venous
     Route: 048
     Dates: start: 20240722
  8. DOCUSATE SODIUM AND SENNA [Concomitant]
     Active Substance: DOCUSATE SODIUM\SENNOSIDES
     Indication: Constipation
     Route: 048
     Dates: start: 20241209

REACTIONS (7)
  - Atypical pneumonia [Fatal]
  - Prostate cancer [Unknown]
  - Hypokalaemia [Unknown]
  - Hypoalbuminaemia [Unknown]
  - Blood alkaline phosphatase increased [Not Recovered/Not Resolved]
  - Hyperglycaemia [Unknown]
  - Anaemia [Not Recovered/Not Resolved]

NARRATIVE: CASE EVENT DATE: 20241220
